FAERS Safety Report 17928273 (Version 1)
Quarter: 2020Q2

REPORT INFORMATION
  Report Type: Spontaneous
  Country: US (occurrence: US)
  Receive Date: 20200622
  Receipt Date: 20200622
  Transmission Date: 20200714
  Serious: Yes (Other)
  Sender: FDA-Public Use
  Company Number: None

PATIENT
  Age: 47 Year
  Sex: Male
  Weight: 79.4 kg

DRUGS (8)
  1. ACETAMINOPHEN 650 MG X1 DOSE [Concomitant]
     Dates: start: 20200616, end: 20200616
  2. ATORVASTATIN 40 MG [Concomitant]
     Active Substance: ATORVASTATIN
     Dates: start: 20200616, end: 20200616
  3. ASCORBIC ACID 1000 MG PO BID [Concomitant]
     Dates: start: 20200616
  4. ENOXAPARIN 40 MG DAILY [Concomitant]
     Dates: start: 20200616
  5. REMDESIVIR. [Suspect]
     Active Substance: REMDESIVIR
     Indication: COVID-19
     Dates: start: 20200617, end: 20200618
  6. AZITHROMYCIN 500 MG DAILY [Concomitant]
     Dates: start: 20200616, end: 20200617
  7. CEFTRIAXONE. [Concomitant]
     Active Substance: CEFTRIAXONE
     Dates: start: 20200616, end: 20200617
  8. IOHEXOL [Concomitant]
     Active Substance: IOHEXOL
     Dates: start: 20200616, end: 20200616

REACTIONS (2)
  - Alanine aminotransferase increased [None]
  - Aspartate aminotransferase increased [None]

NARRATIVE: CASE EVENT DATE: 20200618
